FAERS Safety Report 7099919-5 (Version None)
Quarter: 2010Q4

REPORT INFORMATION
  Report Type: 
  Country: None (occurrence: None)
  Receive Date: 20101105
  Receipt Date: 20100708
  Transmission Date: 20110411
  Serious: Yes (Other)
  Sender: FDA-Public Use
  Company Number: DSA_43470_2010

PATIENT
  Age: 34 Year
  Sex: Male

DRUGS (6)
  1. ATIVAN [Suspect]
     Indication: PRODUCT USED FOR UNKNOWN INDICATION
     Dosage: (1 MG
  2. SOMA [Concomitant]
  3. MOTRIN [Concomitant]
  4. ANTIVERT /00007101/ [Concomitant]
  5. INDERAL [Concomitant]
  6. ZOLOFT [Concomitant]

REACTIONS (7)
  - AFFECTIVE DISORDER [None]
  - ANXIETY [None]
  - DIZZINESS [None]
  - HEADACHE [None]
  - INTERVERTEBRAL DISC DEGENERATION [None]
  - OSTEOARTHRITIS [None]
  - POSTURAL ORTHOSTATIC TACHYCARDIA SYNDROME [None]
